FAERS Safety Report 7998939-3 (Version None)
Quarter: 2011Q4

REPORT INFORMATION
  Report Type: 
  Country: None (occurrence: None)
  Receive Date: 20111221
  Receipt Date: 20111220
  Transmission Date: 20120403
  Serious: Yes (Hospitalization, Disabling)
  Sender: FDA-Public Use
  Company Number: DE-GLAXOSMITHKLINE-D0073273A

PATIENT
  Sex: Female

DRUGS (3)
  1. FERROUS SULFATE TAB [Concomitant]
     Dosage: 100MG PER DAY
     Route: 048
  2. PROMACTA [Suspect]
     Indication: AUTOIMMUNE THROMBOCYTOPENIA
     Dosage: 25MG PER DAY
     Route: 048
     Dates: start: 20111001, end: 20111024
  3. METOPROLOL SUCCINATE [Concomitant]
     Dosage: 47.5MG PER DAY
     Route: 048

REACTIONS (1)
  - RENAL FAILURE ACUTE [None]
